FAERS Safety Report 16663540 (Version 1)
Quarter: 2019Q3

REPORT INFORMATION
  Report Type: Report from Study
  Country: US (occurrence: US)
  Receive Date: 20190802
  Receipt Date: 20190802
  Transmission Date: 20191004
  Serious: No
  Sender: FDA-Public Use
  Company Number: US-EXELIXIS-CABO-19020235

PATIENT
  Sex: Female
  Weight: 125 kg

DRUGS (18)
  1. CARAFATE [Concomitant]
     Active Substance: SUCRALFATE
  2. OMPRAZOLE [Concomitant]
     Active Substance: OMEPRAZOLE
  3. NITROFURANTOIN. [Concomitant]
     Active Substance: NITROFURANTOIN
  4. HYDROMORPHONE [Concomitant]
     Active Substance: HYDROMORPHONE
  5. MUPIROCIN. [Concomitant]
     Active Substance: MUPIROCIN
  6. LORAZEPAM. [Concomitant]
     Active Substance: LORAZEPAM
  7. MIRTAZAPINE. [Concomitant]
     Active Substance: MIRTAZAPINE
  8. DEXAMETHASONE. [Concomitant]
     Active Substance: DEXAMETHASONE
  9. AZELASTINE. [Concomitant]
     Active Substance: AZELASTINE HYDROCHLORIDE
  10. CABOMETYX [Suspect]
     Active Substance: CABOZANTINIB S-MALATE
     Dosage: 20 MG, QOD
     Route: 048
     Dates: start: 20190201, end: 20190710
  11. FENTANYL CITRATE. [Concomitant]
     Active Substance: FENTANYL CITRATE
  12. PROCHLORPERAZINE MALEATE. [Concomitant]
     Active Substance: PROCHLORPERAZINE MALEATE
  13. CABOMETYX [Suspect]
     Active Substance: CABOZANTINIB S-MALATE
     Indication: HEPATIC CANCER
     Dosage: 40 MG, QD
     Route: 048
     Dates: start: 20190201, end: 20190410
  14. MONTELUKAST [Concomitant]
     Active Substance: MONTELUKAST SODIUM
  15. LEVOTHYROXINE. [Concomitant]
     Active Substance: LEVOTHYROXINE
  16. MACROBID [Concomitant]
     Active Substance: NITROFURANTOIN\NITROFURANTOIN MONOHYDRATE
  17. LENVIMA [Suspect]
     Active Substance: LENVATINIB
  18. ONDANSETRON [Concomitant]
     Active Substance: ONDANSETRON

REACTIONS (12)
  - Decreased appetite [Unknown]
  - Weight gain poor [Unknown]
  - Liver function test increased [Unknown]
  - Blood glucose increased [Unknown]
  - Early satiety [Recovered/Resolved]
  - Weight decreased [Unknown]
  - Eructation [Unknown]
  - Sinusitis [Unknown]
  - Gastrooesophageal reflux disease [Unknown]
  - Increased appetite [Not Recovered/Not Resolved]
  - Cough [Unknown]
  - Blood pressure increased [Unknown]
